FAERS Safety Report 13475687 (Version 1)
Quarter: 2017Q2

REPORT INFORMATION
  Report Type: Spontaneous
  Country: CN (occurrence: CN)
  Receive Date: 20170425
  Receipt Date: 20170425
  Transmission Date: 20170830
  Serious: Yes (Hospitalization)
  Sender: FDA-Public Use
  Company Number: CN-ASTRAZENECA-2017SE42539

PATIENT
  Sex: Male
  Weight: 70 kg

DRUGS (4)
  1. CHINESE TRADITIONAL MEDICINE NOS [Suspect]
     Active Substance: UNSPECIFIED INGREDIENT
     Indication: PRODUCTIVE COUGH
     Route: 041
     Dates: start: 20161201, end: 20161205
  2. LEVOFLOXACIN. [Suspect]
     Active Substance: LEVOFLOXACIN
     Indication: INFECTION
     Route: 041
     Dates: start: 20161201, end: 20161204
  3. HAEMOCOAGULASE AGKISTRODON (BATROXOBIN) [Suspect]
     Active Substance: BATROXOBIN
     Indication: HAEMORRHAGE
     Route: 042
     Dates: start: 20161201, end: 20161205
  4. ESOMEPRAZOLE SODIUM. [Suspect]
     Active Substance: ESOMEPRAZOLE SODIUM
     Indication: HYPERCHLORHYDRIA
     Route: 041
     Dates: start: 20161201, end: 20161204

REACTIONS (2)
  - Phlebitis superficial [Unknown]
  - Venous thrombosis [Unknown]
